FAERS Safety Report 26174199 (Version 1)
Quarter: 2025Q4

REPORT INFORMATION
  Report Type: Spontaneous
  Country: US (occurrence: None)
  Receive Date: 20251217
  Receipt Date: 20251217
  Transmission Date: 20260118
  Serious: Yes (Other)
  Sender: FDA-CTU
  Company Number: None

PATIENT
  Sex: Female

DRUGS (11)
  1. ENBREL [Suspect]
     Active Substance: ETANERCEPT
     Indication: Rheumatoid arthritis
     Dosage: INJECT 50 MG UNDER THE SKIN (SUBCUTANEOUS INJECTION) WEEKLY
     Route: 058
     Dates: start: 20250408
  2. ASPIRIN [Concomitant]
     Active Substance: ASPIRIN
  3. CELEBREX [Concomitant]
     Active Substance: CELECOXIB
  4. CRESTOR [Concomitant]
     Active Substance: ROSUVASTATIN CALCIUM
  5. ESTRADIOL [Concomitant]
     Active Substance: ESTRADIOL
  6. FOLIC ACID [Concomitant]
     Active Substance: FOLIC ACID
  7. HYDRO/ACETA SOL [Concomitant]
  8. LEXAPRO [Concomitant]
     Active Substance: ESCITALOPRAM OXALATE
  9. LYRICA [Concomitant]
     Active Substance: PREGABALIN
  10. METHOTREXATE [Concomitant]
     Active Substance: METHOTREXATE
  11. NURTEC ODT [Concomitant]
     Active Substance: RIMEGEPANT SULFATE

REACTIONS (4)
  - Pain [None]
  - Fatigue [None]
  - Surgery [None]
  - Intentional dose omission [None]
